FAERS Safety Report 6658771-X (Version None)
Quarter: 2010Q1

REPORT INFORMATION
  Report Type: 
  Country: None (occurrence: None)
  Receive Date: 20100330
  Receipt Date: 20100323
  Transmission Date: 20100710
  Serious: Yes (Other)
  Sender: FDA-Public Use
  Company Number: PHEH2010US03253

PATIENT
  Sex: Female

DRUGS (31)
  1. TOBI [Suspect]
     Dosage: UNK
     Dates: start: 20091101, end: 20100205
  2. ACCOLATE [Concomitant]
  3. ACTONEL [Concomitant]
  4. ALVESCO [Concomitant]
  5. BACLOFEN [Concomitant]
  6. ALLEGRA D 24 HOUR [Concomitant]
  7. CIPRO [Concomitant]
  8. CITRACAL + D [Concomitant]
  9. CLIMARA [Concomitant]
  10. MYCELEX [Concomitant]
  11. CORTEF                                  /CAN/ [Concomitant]
  12. DIAZEPAM [Concomitant]
  13. LEVOXYL [Concomitant]
  14. LORAZEPAM [Concomitant]
  15. MIRALAX [Concomitant]
  16. NORCO [Concomitant]
  17. NASONEX [Concomitant]
  18. LISINOPRIL [Concomitant]
  19. PREVACID [Concomitant]
  20. PULMICORT [Concomitant]
  21. VOLTAREN                           /00372303/ [Concomitant]
  22. THEOPHYLLINE [Concomitant]
  23. TEMAZEPAM [Concomitant]
  24. TOPAMAX [Concomitant]
  25. SINGULAIR [Concomitant]
  26. SIMVASTATIN [Concomitant]
  27. TERCONAZOLE [Concomitant]
  28. VITAMIN B6 [Concomitant]
  29. VITAMIN B-12 [Concomitant]
  30. BROVANA [Concomitant]
  31. POTASSIUM [Concomitant]

REACTIONS (2)
  - BLOOD CREATININE ABNORMAL [None]
  - RENAL FAILURE CHRONIC [None]
